FAERS Safety Report 6067755-4 (Version None)
Quarter: 2009Q1

REPORT INFORMATION
  Report Type: 
  Country: None (occurrence: None)
  Receive Date: 20090203
  Receipt Date: 20090126
  Transmission Date: 20090719
  Serious: Yes (Death, Other)
  Sender: FDA-Public Use
  Company Number: 2008SP025260

PATIENT
  Age: 94 Year
  Sex: Male

DRUGS (8)
  1. MIRALAX [Suspect]
     Indication: CONSTIPATION
     Dosage: 17 GM;QD; 17 GM;QD; 17 GM;QD
     Dates: start: 20081107, end: 20081110
  2. MIRALAX [Suspect]
     Indication: CONSTIPATION
     Dosage: 17 GM;QD; 17 GM;QD; 17 GM;QD
     Dates: start: 20081112, end: 20081116
  3. MIRALAX [Suspect]
     Indication: CONSTIPATION
     Dosage: 17 GM;QD; 17 GM;QD; 17 GM;QD
     Dates: start: 20080920
  4. SIMVASTATIN [Concomitant]
  5. PANTOPRAZOLE [Concomitant]
  6. METOPROLOL TARTRATE [Concomitant]
  7. FUROSEMIDE [Concomitant]
  8. POTASSIUM CHLORIDE [Concomitant]

REACTIONS (2)
  - DRUG INEFFECTIVE [None]
  - VOMITING [None]
